FAERS Safety Report 4999007-5 (Version None)
Quarter: 2006Q2

REPORT INFORMATION
  Report Type: 
  Country: None (occurrence: None)
  Receive Date: 20060509
  Receipt Date: 20060419
  Transmission Date: 20061013
  Serious: Yes (Hospitalization)
  Sender: FDA-Public Use
  Company Number: US200604004377

PATIENT
  Age: 64 Year
  Sex: Male
  Weight: 119.7 kg

DRUGS (4)
  1. ZYPREXA [Suspect]
     Dosage: 5 MG, DAILY (1/D)
     Dates: start: 20020508, end: 20020612
  2. RISPERIDONE [Concomitant]
  3. HALDOL SOLUTAB [Concomitant]
  4. DOXEPIN HCL [Concomitant]

REACTIONS (13)
  - BLOOD CHOLESTEROL ABNORMAL [None]
  - CARDIAC FAILURE CONGESTIVE [None]
  - CLAUSTROPHOBIA [None]
  - DIABETES MELLITUS [None]
  - DIZZINESS [None]
  - HEART RATE IRREGULAR [None]
  - HYPERTENSION [None]
  - HYPERTRIGLYCERIDAEMIA [None]
  - INSOMNIA [None]
  - LUNG OPERATION [None]
  - PNEUMONIA [None]
  - VISION BLURRED [None]
  - WEIGHT DECREASED [None]
